FAERS Safety Report 9192587 (Version 1)
Quarter: 2013Q1

REPORT INFORMATION
  Report Type: Spontaneous
  Country: US (occurrence: US)
  Receive Date: 20130327
  Receipt Date: 20130327
  Transmission Date: 20140127
  Serious: No
  Sender: FDA-Public Use
  Company Number: US-PFIZER INC-2013099229

PATIENT
  Age: 64 Year
  Sex: Male
  Weight: 83.9 kg

DRUGS (7)
  1. PRISTIQ [Suspect]
     Indication: DEPRESSION
     Dosage: 150 MG DAILY
  2. PRISTIQ [Suspect]
     Dosage: UNK
  3. PRISTIQ [Suspect]
     Dosage: 100 MG IN MORNING AND 50 MG AT NIGHT
  4. TRILEPTAL [Suspect]
     Indication: MOOD SWINGS
     Dosage: 600 MG, 3X/DAY
  5. LIPITOR [Concomitant]
     Indication: BLOOD TRIGLYCERIDES INCREASED
     Dosage: 10 MG DAILY
  6. LEVOTHYROXINE [Concomitant]
     Indication: HYPOTHYROIDISM
     Dosage: 0.5 UG DAILY
  7. KLONOPIN [Concomitant]
     Indication: ANXIETY
     Dosage: 1 MG, AS NEEDED

REACTIONS (6)
  - Incorrect dose administered [Unknown]
  - Drug ineffective [Unknown]
  - Activities of daily living impaired [Recovering/Resolving]
  - Sleep disorder [Unknown]
  - Skin papilloma [Unknown]
  - Feeling abnormal [Unknown]
